FAERS Safety Report 8798688 (Version 1)
Quarter: 2012Q4

REPORT INFORMATION
  Report Type: Report from Study
  Country: US (occurrence: US)
  Receive Date: 20120920
  Receipt Date: 20120920
  Transmission Date: 20130627
  Serious: Yes (Hospitalization)
  Sender: FDA-Public Use
  Company Number: US-GENZYME-CAMP-1002361

PATIENT
  Age: 43 Year
  Sex: Female
  Weight: 81.4 kg

DRUGS (27)
  1. ALEMTUZUMAB [Suspect]
     Indication: MULTIPLE SCLEROSIS
     Dosage: 12 mg, qd
     Route: 065
     Dates: start: 20111129, end: 20111201
  2. ALEMTUZUMAB [Suspect]
     Dosage: 12 mg, qd
     Route: 065
     Dates: start: 20090302, end: 20090306
  3. ALEMTUZUMAB [Suspect]
     Dosage: 12 mg, qd
     Dates: start: 20100223, end: 20100225
  4. METHYLPREDNISOLONE [Concomitant]
     Indication: MULTIPLE SCLEROSIS
     Dosage: 1 g, qd
     Dates: start: 20111129, end: 20111201
  5. NUEDEXTA [Concomitant]
     Indication: ADVERSE EVENT
     Dosage: 1 Other, qd
     Route: 048
     Dates: start: 20120501
  6. DILAUDID [Concomitant]
     Indication: ABDOMINAL PAIN
     Dosage: 0.2 mg, bid
     Route: 042
     Dates: start: 20111014, end: 20111014
  7. DILAUDID [Concomitant]
     Dosage: 1 mg, bid
     Route: 042
     Dates: start: 20111014, end: 20111014
  8. FAMVIR [Concomitant]
     Indication: ORAL HERPES
     Dosage: 500 mg, prn
     Route: 048
     Dates: start: 199707
  9. BACLOFEN [Concomitant]
     Indication: MULTIPLE SCLEROSIS
     Dosage: 20 mg, tid
     Route: 048
     Dates: start: 20090404
  10. BENADRYL [Concomitant]
     Indication: MULTIPLE ALLERGIES
     Dosage: 25 mg, prn
     Route: 048
     Dates: start: 20090307
  11. CITALOPRAM [Concomitant]
     Indication: DEPRESSION
     Dosage: 60 mg, qd
     Route: 048
     Dates: start: 200603
  12. DESIPRAMINE [Concomitant]
     Indication: PAIN
     Dosage: 25 mg, tid
     Route: 048
     Dates: start: 20110212
  13. DULCOLAX [Concomitant]
     Indication: FAECES HARD
     Dosage: 250 mg, tid
     Route: 048
     Dates: start: 20090403
  14. FLEXERIL [Concomitant]
     Indication: PAIN
     Dosage: 10 mg, tid
     Route: 048
     Dates: start: 20100203
  15. NEURONTIN [Concomitant]
     Indication: PAIN
     Dosage: 600 mg, tid
     Route: 048
     Dates: start: 20100203
  16. VALIUM [Concomitant]
     Indication: PAIN
     Dosage: 5 mg, tid
     Route: 048
     Dates: start: 20100801
  17. SENNOSIDES [Concomitant]
     Indication: CONSTIPATION
     Dosage: 34.4 mg, qd
     Route: 048
     Dates: start: 20111102
  18. NORCO [Concomitant]
     Indication: PAIN
     Dosage: 1 Other, prn
     Route: 048
     Dates: start: 20111121
  19. PROBIOTICA [Concomitant]
     Indication: CONSTIPATION
     Dosage: 1 Other, bid
     Route: 048
     Dates: start: 20120124
  20. MIRAPEX [Concomitant]
     Indication: RESTLESS LEGS SYNDROME
     Dosage: 0.5 mg, tid
     Route: 048
     Dates: start: 20111102
  21. VITAMIN D [Concomitant]
     Indication: ROUTINE HEALTH MAINTENANCE
     Dosage: 2000 Other, qd
     Route: 048
     Dates: start: 20120207
  22. FENTANYL [Concomitant]
     Indication: PAIN
     Dosage: 100 mcg, every 3 days
     Route: 061
     Dates: start: 20120420
  23. IBUPROFEN [Concomitant]
     Indication: ADVERSE EVENT
     Dosage: 600 mg, prn
     Route: 048
     Dates: start: 20120401
  24. MIRALAX [Concomitant]
     Indication: CONSTIPATION PROPHYLAXIS
     Dosage: 17 g, prn
     Route: 048
     Dates: start: 20111109
  25. FAMOTIDINE [Concomitant]
     Indication: GASTROOESOPHAGEAL REFLUX DISEASE
     Dosage: 40 mg, qd
     Route: 048
     Dates: start: 20111102
  26. REGLAN [Concomitant]
     Indication: ADVERSE EVENT
     Dosage: 5 mg, bid
     Route: 048
     Dates: start: 20120516
  27. POTASSIUM CHLORIDE [Concomitant]
     Indication: ADVERSE EVENT
     Dosage: 10 mEq, once
     Route: 042
     Dates: start: 20120806, end: 20120806

REACTIONS (1)
  - Colitis [Recovered/Resolved]
